FAERS Safety Report 4877416-2 (Version None)
Quarter: 2006Q1

REPORT INFORMATION
  Report Type: 
  Country: None (occurrence: None)
  Receive Date: 20060111
  Receipt Date: 20051216
  Transmission Date: 20060701
  Serious: Yes (Other)
  Sender: FDA-Public Use
  Company Number: FR-BRISTOL-MYERS SQUIBB COMPANY-13239926

PATIENT
  Age: 82 Year
  Sex: Female

DRUGS (7)
  1. COUMADIN [Suspect]
     Route: 048
     Dates: start: 19870101
  2. VASTEN [Interacting]
     Route: 048
     Dates: start: 20050303
  3. DI-ANTALVIC [Interacting]
     Indication: CHEST INJURY
     Route: 048
     Dates: start: 20051203, end: 20051209
  4. GINKOR FORT [Concomitant]
     Route: 048
  5. LOXEN [Concomitant]
     Route: 048
  6. FOSAMAX [Concomitant]
     Route: 048
  7. OROCAL [Concomitant]
     Route: 048

REACTIONS (3)
  - CHEST INJURY [None]
  - DRUG INTERACTION [None]
  - INTERNATIONAL NORMALISED RATIO INCREASED [None]
